FAERS Safety Report 9805573 (Version 1)
Quarter: 2014Q1

REPORT INFORMATION
  Report Type: Spontaneous
  Country: US (occurrence: None)
  Receive Date: 20140107
  Receipt Date: 20140107
  Transmission Date: 20141002
  Serious: Yes (Death)
  Sender: FDA-Public Use
  Company Number: KAD201401-000003

PATIENT
  Sex: Female

DRUGS (1)
  1. TOPOTECAN (TOPOTECAN) [Suspect]
     Indication: GLIOMA
     Dosage: TOTAL DOSE 0.403 MG IN 6.04 ML OVER 100H

REACTIONS (1)
  - Neoplasm progression [None]
